FAERS Safety Report 10261571 (Version 2)
Quarter: 2014Q2

REPORT INFORMATION
  Report Type: Report from Study
  Country: AU (occurrence: AU)
  Receive Date: 20140626
  Receipt Date: 20140626
  Transmission Date: 20141212
  Serious: Yes (Other)
  Sender: FDA-Public Use
  Company Number: AU-BAYER-2014-082621

PATIENT
  Age: 48 Year
  Sex: Female
  Weight: 78 kg

DRUGS (6)
  1. STIVARGA [Suspect]
     Indication: COLORECTAL CANCER METASTATIC
     Dosage: 160 MG, QD (160 MG DAILY)
     Route: 048
     Dates: start: 20140522, end: 2014
  2. ENDONE [Concomitant]
     Indication: PAIN
     Dosage: 5 MG, PRN
     Route: 048
     Dates: start: 20140527
  3. PANADOL [Concomitant]
     Indication: PAIN
     Dosage: 1 MG, PRN
     Route: 048
  4. CLEXANE [Concomitant]
     Indication: ANTICOAGULANT THERAPY
     Dosage: 40 MG, QD (40 MG DAILY)
     Route: 058
     Dates: start: 2013
  5. PREDNISOLONE [Concomitant]
     Indication: PAIN
     Dosage: 10 MG, QD )10 MG DAILY)
     Route: 048
  6. NEXIUM [Concomitant]
     Indication: REFLUX GASTRITIS
     Dosage: 40 MG, QD
     Route: 048

REACTIONS (4)
  - General physical health deterioration [Not Recovered/Not Resolved]
  - Abdominal pain [Not Recovered/Not Resolved]
  - Musculoskeletal pain [Not Recovered/Not Resolved]
  - Dysphonia [Not Recovered/Not Resolved]
